FAERS Safety Report 9412533 (Version 1)
Quarter: 2013Q3

REPORT INFORMATION
  Report Type: Spontaneous
  Country: US (occurrence: None)
  Receive Date: 20130715
  Receipt Date: 20130715
  Transmission Date: 20140515
  Serious: Yes (Other)
  Sender: FDA-Public Use
  Company Number: 2013PA010541

PATIENT
  Sex: Female

DRUGS (2)
  1. RISPERIDONE [Suspect]
  2. RISPERIDONE [Suspect]

REACTIONS (1)
  - Thyroid cancer [None]
